FAERS Safety Report 20684181 (Version 2)
Quarter: 2022Q2

REPORT INFORMATION
  Report Type: Spontaneous
  Country: IT (occurrence: IT)
  Receive Date: 20220407
  Receipt Date: 20220418
  Transmission Date: 20220721
  Serious: Yes (Hospitalization)
  Sender: FDA-Public Use
  Company Number: IT-TEVA-2022-IT-2023610

PATIENT
  Age: 6 Decade
  Sex: Female

DRUGS (1)
  1. PREDNISONE [Suspect]
     Active Substance: PREDNISONE
     Indication: Eosinophilic cellulitis
     Dosage: .5 MG/KG DAILY;
     Route: 065

REACTIONS (1)
  - Rebound effect [Recovered/Resolved]
